FAERS Safety Report 9233959 (Version 1)
Quarter: 2013Q2

REPORT INFORMATION
  Report Type: Spontaneous
  Country: US (occurrence: US)
  Receive Date: 20130416
  Receipt Date: 20130416
  Transmission Date: 20140414
  Serious: No
  Sender: FDA-Public Use
  Company Number: US-BANPHARM-20120424

PATIENT
  Age: 41 Year
  Sex: Male
  Weight: 145.6 kg

DRUGS (2)
  1. ALEVE LIQUID GELS 220MG [Suspect]
     Indication: PAIN
     Dosage: 2 DF, QD,
     Route: 048
     Dates: start: 201211, end: 201211
  2. COPAXONE [Concomitant]

REACTIONS (2)
  - Drug ineffective [Unknown]
  - Incorrect drug administration duration [Unknown]
